FAERS Safety Report 18389567 (Version 1)
Quarter: 2020Q4

REPORT INFORMATION
  Report Type: Spontaneous
  Country: CN (occurrence: CN)
  Receive Date: 20201016
  Receipt Date: 20201016
  Transmission Date: 20210114
  Serious: Yes (Death, Other)
  Sender: FDA-Public Use
  Company Number: CN-009507513-2010CHN004977

PATIENT
  Age: 54 Year
  Sex: Female
  Weight: 45 kg

DRUGS (13)
  1. DEXTROSE. [Concomitant]
     Active Substance: DEXTROSE
     Dosage: 50 MILLILITER, TWO TIMES A DAY (Q12H); INTRA-PUMP INJECTION
     Dates: start: 20200924, end: 20201004
  2. DEXTROSE. [Concomitant]
     Active Substance: DEXTROSE
     Dosage: 100 MILLILITER, ONE EVERY 3 DAYS; INTRA-PUMP INJECTION
     Dates: start: 20200925, end: 20201004
  3. TEICOPLANIN [Suspect]
     Active Substance: TEICOPLANIN
     Indication: INFECTION
     Dosage: 400 MILLIGRAM, TWO TIMES A DAY
     Route: 041
     Dates: start: 20200923, end: 20200924
  4. PIPERACILLIN AND TAZOBACTAM [Suspect]
     Active Substance: PIPERACILLIN SODIUM\TAZOBACTAM SODIUM
     Indication: INFECTION
     Dosage: 4.5 GRAM, THREE TIMES A DAY; INTRA-PUMP INJECTION
     Dates: start: 20200921, end: 20200923
  5. LACTULOSE. [Suspect]
     Active Substance: LACTULOSE
     Indication: CONSTIPATION
     Dosage: 15 MILLILITER, 2 TIMES A DAY
     Route: 045
     Dates: start: 20200922, end: 20201004
  6. PIPERACILLIN AND TAZOBACTAM [Suspect]
     Active Substance: PIPERACILLIN SODIUM\TAZOBACTAM SODIUM
     Dosage: 4.5 GRAM, TWO TIMES A DAY; INTRA-PUMP INJECTION
     Dates: start: 20200924, end: 20201004
  7. SODIUM CHLORIDE. [Concomitant]
     Active Substance: SODIUM CHLORIDE
     Dosage: 100 MILLILITER, THREE TIMES A DAY
     Route: 041
     Dates: start: 20200915, end: 20200921
  8. TRIMEBUTINE MALEATE [Concomitant]
     Active Substance: TRIMEBUTINE MALEATE
     Indication: GASTROINTESTINAL MOTILITY DISORDER
     Dosage: 0.2 GRAM, THREE TIMES A DAY
     Route: 045
     Dates: start: 20200923, end: 20201004
  9. TIENAM [Suspect]
     Active Substance: CILASTATIN SODIUM\IMIPENEM
     Indication: INFECTION
     Dosage: 1 GRAM, THREE TIMES A DAY (Q8H)
     Route: 041
     Dates: start: 20200915, end: 20200921
  10. FU FANG SHI SUAN RU GAN JUN PIAN [Concomitant]
     Indication: DYSBIOSIS
     Dosage: 1 GRAM, THREE TIMES A DAY
     Route: 045
     Dates: start: 20200923, end: 20201004
  11. DEXTROSE. [Concomitant]
     Active Substance: DEXTROSE
     Dosage: 100 MILLILITER, TWO TIMES A DAY; INTRA-PUMP INJECTION
     Dates: start: 20200923, end: 20200924
  12. TEICOPLANIN [Suspect]
     Active Substance: TEICOPLANIN
     Dosage: 400 MILLIGRAM, EVERY 3 DAYS
     Route: 041
     Dates: start: 20200925, end: 20201004
  13. DEXTROSE. [Concomitant]
     Active Substance: DEXTROSE
     Dosage: 50 MILLILITER, THREE TIMES A DAY; INTRA-PUMP INJECTION
     Dates: start: 20200921, end: 20200923

REACTIONS (4)
  - Inflammatory marker increased [Recovering/Resolving]
  - Constipation [Recovering/Resolving]
  - Diarrhoea [Recovering/Resolving]
  - Death [Fatal]

NARRATIVE: CASE EVENT DATE: 20200922
